FAERS Safety Report 4684731-4 (Version None)
Quarter: 2005Q2

REPORT INFORMATION
  Report Type: 
  Country: None (occurrence: None)
  Receive Date: 20050603
  Receipt Date: 20050524
  Transmission Date: 20051028
  Serious: Yes (Hospitalization)
  Sender: FDA-Public Use
  Company Number: ACC000044

PATIENT
  Age: 67 Year
  Sex: Male

DRUGS (2)
  1. HEPARIN SODIUM [Suspect]
     Dosage: 5000 IU; IV
     Route: 042
     Dates: start: 20040707
  2. EPTIFIBATIDE [Concomitant]

REACTIONS (2)
  - CEREBROVASCULAR ACCIDENT [None]
  - HYPOTENSION [None]
